FAERS Safety Report 25316019 (Version 1)
Quarter: 2025Q2

REPORT INFORMATION
  Report Type: Report from Study
  Country: US (occurrence: US)
  Receive Date: 20250515
  Receipt Date: 20250515
  Transmission Date: 20250716
  Serious: Yes (Other)
  Sender: ALEXION PHARMACEUTICALS
  Company Number: US-AstraZeneca-CH-00868164A

PATIENT

DRUGS (1)
  1. ACALABRUTINIB [Suspect]
     Active Substance: ACALABRUTINIB
     Indication: Chronic lymphocytic leukaemia
     Dosage: 100 MILLIGRAM, Q12H

REACTIONS (6)
  - Facial paralysis [Unknown]
  - Upper respiratory tract infection [Unknown]
  - Splenomegaly [Unknown]
  - Abdominal distension [Unknown]
  - Weight increased [Unknown]
  - Intentional dose omission [Unknown]
